FAERS Safety Report 21343192 (Version 1)
Quarter: 2022Q3

REPORT INFORMATION
  Report Type: Spontaneous
  Country: US (occurrence: US)
  Receive Date: 20220916
  Receipt Date: 20220916
  Transmission Date: 20221027
  Serious: Yes (Other)
  Sender: FDA-Public Use
  Company Number: US-SA-SAC20220915000153

PATIENT

DRUGS (2)
  1. ZANTAC [Suspect]
     Active Substance: RANITIDINE HYDROCHLORIDE
     Dosage: UNK, PRESCRIPTION ZANTAC FROM APPROXIMATELY 2005 TO 2013;OVER THE COUNTER ZANTAC FROM APPROXIMATELY
     Route: 048
     Dates: start: 2005, end: 2013
  2. RANITIDINE HYDROCHLORIDE [Concomitant]
     Active Substance: RANITIDINE HYDROCHLORIDE
     Dosage: UNK,PRESCRIPTION RANITIDINE FROM APPROXIMATELY 2005 TO 2013
     Route: 048

REACTIONS (1)
  - Colorectal cancer [Unknown]
